FAERS Safety Report 24420398 (Version 2)
Quarter: 2024Q4

REPORT INFORMATION
  Report Type: Report from Study
  Country: CL (occurrence: CL)
  Receive Date: 20241010
  Receipt Date: 20241015
  Transmission Date: 20250115
  Serious: Yes (Other)
  Sender: NOVO NORDISK
  Company Number: CL-NOVOPROD-1295683

PATIENT
  Age: 65 Year
  Sex: Female
  Weight: 68 kg

DRUGS (7)
  1. LOSARTAN [Concomitant]
     Active Substance: LOSARTAN
     Indication: Product used for unknown indication
     Dosage: UNK
  2. HYDROCHLOROTHIAZIDE [Concomitant]
     Active Substance: HYDROCHLOROTHIAZIDE
     Indication: Product used for unknown indication
     Dosage: UNK
  3. BISOPROLOL FUMARATE [Concomitant]
     Active Substance: BISOPROLOL FUMARATE
     Indication: Hypertension
     Dosage: 2.5MG
  4. ACTRAPID [Suspect]
     Active Substance: INSULIN HUMAN
     Indication: Diabetes mellitus
     Dosage: 15IU
     Route: 058
     Dates: start: 202407, end: 20240925
  5. ACTRAPID [Suspect]
     Active Substance: INSULIN HUMAN
     Dosage: UNK (RESTARTED DOSE)
     Route: 058
     Dates: start: 20240926
  6. INSULATARD NPH HUMAN [Suspect]
     Active Substance: INSULIN HUMAN
     Indication: Diabetes mellitus
     Dosage: 70 IU, QD
     Route: 058
     Dates: start: 202407, end: 20240925
  7. INSULATARD NPH HUMAN [Suspect]
     Active Substance: INSULIN HUMAN
     Dosage: UNK (RESTARTED DOSE)
     Route: 058
     Dates: start: 20240926

REACTIONS (3)
  - Cataract [Recovered/Resolved]
  - Eye operation [Recovered/Resolved]
  - Eye operation [Unknown]

NARRATIVE: CASE EVENT DATE: 20240801
